FAERS Safety Report 24299776 (Version 1)
Quarter: 2024Q3

REPORT INFORMATION
  Report Type: Spontaneous
  Country: US (occurrence: None)
  Receive Date: 20240909
  Receipt Date: 20240909
  Transmission Date: 20241017
  Serious: Yes (Disabling, Other)
  Sender: Public
  Company Number: None

PATIENT
  Age: 42 Year
  Sex: Male
  Weight: 72.9 kg

DRUGS (3)
  1. ESCITALOPRAM [Suspect]
     Active Substance: ESCITALOPRAM OXALATE
     Indication: Stress
     Dosage: OTHER QUANTITY : 1 TABLET(S);?
     Route: 048
     Dates: start: 20220208, end: 20220308
  2. CIALIS [Concomitant]
     Active Substance: TADALAFIL
  3. VITAMIN B12 [Concomitant]
     Active Substance: CYANOCOBALAMIN

REACTIONS (21)
  - Loss of libido [None]
  - Pollakiuria [None]
  - Erectile dysfunction [None]
  - Penile curvature [None]
  - Dysuria [None]
  - Orgasm abnormal [None]
  - Hypertension [None]
  - Heart rate decreased [None]
  - Heart rate increased [None]
  - Insomnia [None]
  - Tinnitus [None]
  - Muscle contractions involuntary [None]
  - Faeces soft [None]
  - Constipation [None]
  - Diplopia [None]
  - Brain fog [None]
  - Amnesia [None]
  - Affect lability [None]
  - Pain in extremity [None]
  - Disturbance in attention [None]
  - Influenza like illness [None]

NARRATIVE: CASE EVENT DATE: 20220308
